FAERS Safety Report 8717201 (Version 7)
Quarter: 2013Q3

REPORT INFORMATION
  Report Type: Report from Study
  Country: DE (occurrence: DE)
  Receive Date: 20120810
  Receipt Date: 20130711
  Transmission Date: 20140515
  Serious: Yes (Life-Threatening, Hospitalization)
  Sender: FDA-Public Use
  Company Number: DE-CELGENEUS-062-21660-12080230

PATIENT
  Age: 72 Year
  Sex: Female
  Weight: 82 kg

DRUGS (4)
  1. ABRAXANE [Suspect]
     Indication: BREAST CANCER
     Route: 041
     Dates: start: 20120711, end: 20120725
  2. ABRAXANE [Suspect]
     Route: 041
     Dates: end: 20120920
  3. CAPECITABINE [Suspect]
     Indication: BREAST CANCER
     Route: 048
     Dates: start: 20120711, end: 20120724
  4. CAPECITABINE [Suspect]
     Route: 048
     Dates: end: 20120920

REACTIONS (4)
  - Dehydration [Recovered/Resolved with Sequelae]
  - Enteritis [Recovered/Resolved with Sequelae]
  - Sepsis [Recovered/Resolved]
  - Renal failure [Recovered/Resolved]
